FAERS Safety Report 9478685 (Version 2)
Quarter: 2013Q3

REPORT INFORMATION
  Report Type: Spontaneous
  Country: DE (occurrence: DE)
  Receive Date: 20130827
  Receipt Date: 20130827
  Transmission Date: 20140515
  Serious: Yes (Other)
  Sender: FDA-Public Use
  Company Number: DE-UCBSA-088543

PATIENT
  Age: 21 Year
  Sex: Female
  Weight: 70 kg

DRUGS (3)
  1. VIMPAT [Suspect]
     Indication: EPILEPSY
     Dates: start: 20110311
  2. CERAZETTE [Suspect]
     Indication: CONTRACEPTION
  3. LYRICA [Concomitant]

REACTIONS (4)
  - Pregnancy on contraceptive [Unknown]
  - Hyperemesis gravidarum [Unknown]
  - Overdose [Unknown]
  - Pregnancy [Recovered/Resolved]
